FAERS Safety Report 22207902 (Version 1)
Quarter: 2023Q2

REPORT INFORMATION
  Report Type: Spontaneous
  Country: US (occurrence: US)
  Receive Date: 20230413
  Receipt Date: 20230413
  Transmission Date: 20230722
  Serious: No
  Sender: FDA-Public Use
  Company Number: US-JNJFOC-20191145454

PATIENT

DRUGS (1)
  1. IMODIUM A-D [Suspect]
     Active Substance: LOPERAMIDE HYDROCHLORIDE
     Indication: Colitis ulcerative
     Dosage: 40 2 MG EACH DAY
     Route: 065

REACTIONS (3)
  - Overdose [Unknown]
  - Off label use [Unknown]
  - Product use in unapproved indication [Unknown]
